FAERS Safety Report 8707595 (Version 2)
Quarter: 2013Q4

REPORT INFORMATION
  Report Type: Spontaneous
  Country: US (occurrence: US)
  Receive Date: 20120805
  Receipt Date: 20131031
  Transmission Date: 20140711
  Serious: No
  Sender: FDA-Public Use
  Company Number: US-009507513-2012SP024103

PATIENT
  Age: 10 Year
  Sex: Female
  Weight: 32.66 kg

DRUGS (5)
  1. CLARITIN ORAL SOLUTION [Suspect]
     Indication: SEASONAL ALLERGY
     Dosage: 10 MG, ONCE
     Route: 048
     Dates: start: 20120424
  2. CLARITIN ORAL SOLUTION [Suspect]
     Indication: LACRIMATION INCREASED
  3. CLARITIN ORAL SOLUTION [Suspect]
     Indication: THROAT IRRITATION
  4. CLARITIN ORAL SOLUTION [Suspect]
     Indication: SINUS CONGESTION
  5. CLARITIN ORAL SOLUTION [Suspect]
     Indication: MEDICAL OBSERVATION

REACTIONS (2)
  - Oropharyngeal pain [Recovered/Resolved]
  - Throat irritation [Recovered/Resolved]
